FAERS Safety Report 8291900-3 (Version None)
Quarter: 2012Q2

REPORT INFORMATION
  Report Type: 
  Country: None (occurrence: None)
  Receive Date: 20120417
  Receipt Date: 20110315
  Transmission Date: 20120825
  Serious: No
  Sender: FDA-Public Use
  Company Number: US-ASTRAZENECA-2011SE14603

PATIENT
  Age: 65 Year
  Sex: Male

DRUGS (8)
  1. METOPROLOL SUCCINATE [Concomitant]
  2. RANITIDINE [Concomitant]
  3. ASPIRIN [Concomitant]
  4. FISH OIL [Concomitant]
  5. NEXIUM [Suspect]
     Indication: BARRETT'S OESOPHAGUS
     Route: 048
     Dates: start: 20070101, end: 20101101
  6. PLAVIX [Concomitant]
  7. NEXIUM [Suspect]
     Indication: GASTROOESOPHAGEAL REFLUX DISEASE
     Route: 048
     Dates: start: 20070101, end: 20101101
  8. IBUPROFEN [Concomitant]

REACTIONS (1)
  - CORONARY ARTERIAL STENT INSERTION [None]
